FAERS Safety Report 6077888-4 (Version None)
Quarter: 2009Q1

REPORT INFORMATION
  Report Type: 
  Country: None (occurrence: None)
  Receive Date: 20090213
  Receipt Date: 20090204
  Transmission Date: 20090719
  Serious: Yes (Death, Hospitalization)
  Sender: FDA-Public Use
  Company Number: SE-PFIZER INC-2009166403

PATIENT

DRUGS (9)
  1. CAMPTOSAR [Suspect]
     Indication: COLON CANCER
     Dosage: 340 MG, 2X/DAY
     Route: 042
     Dates: start: 20080714, end: 20080811
  2. FLUOROURACIL [Suspect]
     Indication: NEOPLASM MALIGNANT
  3. FLUOXETINE [Concomitant]
  4. LEUCOVORIN CALCIUM [Concomitant]
  5. ATROPIN [Concomitant]
  6. VERAPAMIL [Concomitant]
  7. DICLOFENAC [Concomitant]
  8. ATENOLOL [Concomitant]
  9. PANTOPRAZOLE [Concomitant]

REACTIONS (1)
  - ACUTE RESPIRATORY DISTRESS SYNDROME [None]
